FAERS Safety Report 5819462-8 (Version None)
Quarter: 2008Q3

REPORT INFORMATION
  Report Type: 
  Country: None (occurrence: None)
  Receive Date: 20080723
  Receipt Date: 20080715
  Transmission Date: 20090109
  Serious: Yes (Other)
  Sender: FDA-Public Use
  Company Number: BR-ASTRAZENECA-2008UW14255

PATIENT
  Age: 75 Year
  Sex: Male

DRUGS (4)
  1. SYMBICORT [Suspect]
     Indication: BRONCHITIS
     Dosage: 320/9UG QID
     Route: 055
  2. SYMBICORT [Suspect]
     Indication: ASTHMA
     Dosage: 320/9UG QID
     Route: 055
  3. ATROVENT [Concomitant]
     Indication: BRONCHITIS
     Route: 055
  4. ATROVENT [Concomitant]
     Indication: ASTHMA
     Route: 055

REACTIONS (2)
  - BRONCHITIS [None]
  - DYSPNOEA [None]
